FAERS Safety Report 5418637-X (Version None)
Quarter: 2007Q3

REPORT INFORMATION
  Report Type: 
  Country: None (occurrence: None)
  Receive Date: 20070817
  Receipt Date: 20070807
  Transmission Date: 20080115
  Serious: Yes (Other)
  Sender: FDA-Public Use
  Company Number: US-PFIZER INC-2007065626

PATIENT
  Sex: Female
  Weight: 72.727 kg

DRUGS (2)
  1. LIPITOR [Suspect]
     Indication: BLOOD CHOLESTEROL INCREASED
     Dates: start: 20070101, end: 20070601
  2. LIPITOR [Suspect]
     Indication: BLOOD TRIGLYCERIDES INCREASED

REACTIONS (8)
  - ABASIA [None]
  - ABDOMINAL PAIN UPPER [None]
  - ACTIVITIES OF DAILY LIVING IMPAIRED [None]
  - ANGIOPATHY [None]
  - BONE PAIN [None]
  - MUSCLE SPASMS [None]
  - PAIN IN EXTREMITY [None]
  - PARAESTHESIA [None]
